FAERS Safety Report 8060574-9 (Version None)
Quarter: 2012Q1

REPORT INFORMATION
  Report Type: 
  Country: None (occurrence: None)
  Receive Date: 20120120
  Receipt Date: 20120117
  Transmission Date: 20120608
  Serious: Yes (Death, Other)
  Sender: FDA-Public Use
  Company Number: PHHY2012DK004174

PATIENT
  Sex: Male
  Weight: 1.8 kg

DRUGS (2)
  1. VALPROIC ACID [Suspect]
     Indication: EPILEPSY
     Dosage: 100 MG, UNK
     Route: 064
  2. TEGRETOL [Suspect]
     Indication: EPILEPSY
     Route: 064

REACTIONS (14)
  - RESPIRATORY TRACT MALFORMATION [None]
  - KYPHOSIS CONGENITAL [None]
  - SHOULDER DEFORMITY [None]
  - FOETAL HEART RATE DECREASED [None]
  - REPRODUCTIVE TRACT HYPOPLASIA, MALE [None]
  - PREMATURE DELIVERY [None]
  - LOW BIRTH WEIGHT BABY [None]
  - CONGENITAL MULTIPLEX ARTHROGRYPOSIS [None]
  - EXTREMITY CONTRACTURE [None]
  - LIMB MALFORMATION [None]
  - FOETAL CHROMOSOME ABNORMALITY [None]
  - HYPOSPADIAS [None]
  - CONGENITAL EYE DISORDER [None]
  - FOETAL EXPOSURE DURING PREGNANCY [None]
